FAERS Safety Report 20901617 (Version 8)
Quarter: 2022Q4

REPORT INFORMATION
  Report Type: Spontaneous
  Country: US (occurrence: US)
  Receive Date: 20220601
  Receipt Date: 20221222
  Transmission Date: 20230113
  Serious: No
  Sender: FDA-Public Use
  Company Number: US-PFIZER INC-202200772556

PATIENT
  Age: 85 Year
  Sex: Female

DRUGS (3)
  1. EUCRISA [Suspect]
     Active Substance: CRISABOROLE
     Indication: Dermatitis
     Dosage: 100 G, 2X/DAY, APPLY TO INFLAMED SKIN FOLDS
     Route: 061
  2. EUCRISA [Suspect]
     Active Substance: CRISABOROLE
     Indication: Rash
     Dosage: UNK UNK, 2X/DAY, TO RASH IN THE SKIN FOLDS
     Route: 061
     Dates: start: 20220516
  3. CLOBETASOL [Concomitant]
     Active Substance: CLOBETASOL
     Dosage: UNK

REACTIONS (4)
  - Breast discomfort [Unknown]
  - Oral herpes [Unknown]
  - Therapeutic response unexpected [Unknown]
  - Off label use [Unknown]
